FAERS Safety Report 7751301-0 (Version None)
Quarter: 2011Q3

REPORT INFORMATION
  Report Type: 
  Country: None (occurrence: None)
  Receive Date: 20110912
  Receipt Date: 20110901
  Transmission Date: 20111222
  Serious: Yes (Other)
  Sender: FDA-Public Use
  Company Number: 2011PL000125

PATIENT
  Age: 61 Year
  Sex: Female
  Weight: 69.4003 kg

DRUGS (2)
  1. LOTRONEX [Suspect]
     Indication: IRRITABLE BOWEL SYNDROME
     Dosage: 1 MG;QD;PO
     Route: 048
     Dates: start: 20030101, end: 20110808
  2. MULTI-VITAMINS [Concomitant]

REACTIONS (1)
  - COLITIS ISCHAEMIC [None]
